FAERS Safety Report 10334538 (Version 1)
Quarter: 2014Q3

REPORT INFORMATION
  Report Type: Spontaneous
  Country: DE (occurrence: DE)
  Receive Date: 20140723
  Receipt Date: 20140723
  Transmission Date: 20150326
  Serious: Yes (Other)
  Sender: FDA-Public Use
  Company Number: DE-MYLANLABS-2014S1016479

PATIENT
  Sex: Male
  Weight: 3.95 kg

DRUGS (2)
  1. VALPROAT [Suspect]
     Active Substance: VALPROATE SODIUM
     Indication: EPILEPSY
     Dosage: { 1000 [MG/D ]
     Route: 064
     Dates: start: 20070314, end: 20071117
  2. FOLIC ACID. [Concomitant]
     Active Substance: FOLIC ACID
     Indication: PROPHYLAXIS OF NEURAL TUBE DEFECT
     Route: 064

REACTIONS (4)
  - Sensorimotor disorder [Not Recovered/Not Resolved]
  - Foetal exposure during pregnancy [Unknown]
  - Language disorder [Not Recovered/Not Resolved]
  - Fine motor delay [Not Recovered/Not Resolved]
